FAERS Safety Report 8913054 (Version 1)
Quarter: 2012Q4

REPORT INFORMATION
  Report Type: Spontaneous
  Country: US (occurrence: None)
  Receive Date: 20121113
  Receipt Date: 20121113
  Transmission Date: 20130627
  Serious: Yes (Hospitalization, Other)
  Sender: FDA-Public Use
  Company Number: UTC-025212

PATIENT
  Age: 51 Year
  Sex: Female
  Weight: 115 kg

DRUGS (2)
  1. TYVASO [Suspect]
     Indication: PULMONARY HYPERTENSION SECONDARY
     Route: 055
     Dates: start: 20120712
  2. TRACLEER (BOSENTAN) [Concomitant]

REACTIONS (2)
  - Drug dose omission [None]
  - Pulmonary arterial pressure increased [None]
